FAERS Safety Report 7583444-9 (Version None)
Quarter: 2011Q2

REPORT INFORMATION
  Report Type: 
  Country: None (occurrence: None)
  Receive Date: 20110623
  Receipt Date: 20110615
  Transmission Date: 20111010
  Serious: Yes (Other)
  Sender: FDA-Public Use
  Company Number: US-ACCORD-009544

PATIENT
  Sex: Male

DRUGS (1)
  1. MYCOPHENOLATE MOFETIL [Suspect]

REACTIONS (4)
  - FEELING ABNORMAL [None]
  - VOMITING [None]
  - WEIGHT DECREASED [None]
  - APHAGIA [None]
